FAERS Safety Report 19087697 (Version 3)
Quarter: 2022Q1

REPORT INFORMATION
  Report Type: Spontaneous
  Country: US (occurrence: US)
  Receive Date: 20210402
  Receipt Date: 20220304
  Transmission Date: 20220423
  Serious: Yes (Other)
  Sender: FDA-Public Use
  Company Number: US-ORGANON-O2104USA000080

PATIENT
  Age: 27 Year
  Sex: Female

DRUGS (1)
  1. NEXPLANON [Suspect]
     Active Substance: ETONOGESTREL
     Dosage: 68 MILLIGRAM, 1 IMPLANT IN LEFT ARM
     Route: 059
     Dates: end: 20210223

REACTIONS (5)
  - Device dislocation [Recovered/Resolved]
  - Implant site pain [Unknown]
  - Device issue [Recovered/Resolved]
  - Complication of device removal [Recovered/Resolved]
  - Complication of device removal [Recovered/Resolved]

NARRATIVE: CASE EVENT DATE: 20210218
